FAERS Safety Report 6952126-6 (Version None)
Quarter: 2010Q3

REPORT INFORMATION
  Report Type: 
  Country: None (occurrence: None)
  Receive Date: 20100829
  Receipt Date: 20100427
  Transmission Date: 20110219
  Serious: No
  Sender: FDA-Public Use
  Company Number: US-ABBOTT-10P-163-0640929-00

PATIENT
  Sex: Female
  Weight: 67.192 kg

DRUGS (4)
  1. NIASPAN [Suspect]
     Indication: DYSLIPIDAEMIA
     Dosage: AT BED TIME
     Route: 048
     Dates: start: 20100420
  2. IBUPROFEN [Concomitant]
     Indication: PAIN
     Dosage: IF NEEDED
     Route: 048
  3. AMBIEN [Concomitant]
     Indication: INSOMNIA
     Dosage: IF NEEDED
     Route: 048
  4. FOSAMAX [Concomitant]
     Indication: PRODUCT USED FOR UNKNOWN INDICATION
     Route: 048

REACTIONS (5)
  - ERYTHEMA [None]
  - FEELING HOT [None]
  - FLUSHING [None]
  - PRURITUS [None]
  - SKIN BURNING SENSATION [None]
